FAERS Safety Report 10534272 (Version 3)
Quarter: 2014Q4

REPORT INFORMATION
  Report Type: Spontaneous
  Country: CN (occurrence: CN)
  Receive Date: 20141022
  Receipt Date: 20141112
  Transmission Date: 20150529
  Serious: Yes (Hospitalization, Other)
  Sender: FDA-Public Use
  Company Number: CN-ASTRAZENECA-2014SE65533

PATIENT
  Age: 71 Year
  Sex: Female

DRUGS (2)
  1. PLENDIL [Suspect]
     Active Substance: FELODIPINE
     Indication: HYPERTENSION
     Route: 048
     Dates: start: 2001
  2. PLENDIL [Suspect]
     Active Substance: FELODIPINE
     Indication: HYPERTENSION
     Dosage: 5MG QD IN WINTER AND 2.5MG QD IN SUMMER
     Route: 048

REACTIONS (10)
  - Multiple fractures [Unknown]
  - Blood potassium decreased [Unknown]
  - Oedema peripheral [Unknown]
  - Fall [Unknown]
  - Cerebrovascular accident [Unknown]
  - Mouth ulceration [Not Recovered/Not Resolved]
  - Rash [Recovering/Resolving]
  - Cardiovascular disorder [Unknown]
  - Dizziness [Recovered/Resolved]
  - Intentional product misuse [Unknown]

NARRATIVE: CASE EVENT DATE: 2001
